FAERS Safety Report 8059343-5 (Version None)
Quarter: 2012Q1

REPORT INFORMATION
  Report Type: 
  Country: None (occurrence: None)
  Receive Date: 20120120
  Receipt Date: 20120120
  Transmission Date: 20120608
  Serious: No
  Sender: FDA-Public Use
  Company Number: None

PATIENT
  Age: 44 Year
  Sex: Female
  Weight: 121 kg

DRUGS (2)
  1. DOXORUBICIN HCL [Concomitant]
     Dosage: 133MG
     Route: 041
     Dates: start: 20100913, end: 20101011
  2. DOXORUBICIN HCL [Suspect]
     Indication: BREAST CANCER
     Dosage: 133 MG
     Route: 040
     Dates: start: 20100830, end: 20100830

REACTIONS (3)
  - DYSPNOEA [None]
  - RASH PRURITIC [None]
  - RASH MACULO-PAPULAR [None]
